FAERS Safety Report 7996001-7 (Version None)
Quarter: 2011Q4

REPORT INFORMATION
  Report Type: 
  Country: None (occurrence: None)
  Receive Date: 20111220
  Receipt Date: 20111206
  Transmission Date: 20120403
  Serious: Yes (Hospitalization, Other)
  Sender: FDA-Public Use
  Company Number: PHHY2011DE107664

PATIENT
  Sex: Male
  Weight: 52 kg

DRUGS (4)
  1. AFINITOR [Suspect]
     Indication: RENAL CELL CARCINOMA
     Dosage: 10 MG, QD
     Route: 048
     Dates: start: 20110201, end: 20111105
  2. PREDNISONE TAB [Suspect]
     Indication: PULMONARY FIBROSIS
     Dosage: 20 MG, TID, 3 WEEKS
     Route: 048
     Dates: start: 20110924, end: 20111001
  3. PREDNISONE TAB [Suspect]
     Dosage: DOSE TAPERING
     Route: 048
     Dates: start: 20111001, end: 20111101
  4. PREDNISONE TAB [Suspect]
     Dosage: 10 MG, ONCE DAILY
     Route: 048
     Dates: start: 20111101

REACTIONS (8)
  - PULMONARY OEDEMA [None]
  - DYSPHAGIA [None]
  - PULMONARY FIBROSIS [None]
  - HERPES SIMPLEX [None]
  - WEIGHT DECREASED [None]
  - PLEURAL EFFUSION [None]
  - HYPOPHAGIA [None]
  - DYSPNOEA [None]
